FAERS Safety Report 9284293 (Version 4)
Quarter: 2013Q2

REPORT INFORMATION
  Report Type: Report from Study
  Country: HU (occurrence: HU)
  Receive Date: 20130510
  Receipt Date: 20130613
  Transmission Date: 20140414
  Serious: Yes (Hospitalization, Other)
  Sender: FDA-Public Use
  Company Number: HU-VERTEX PHARMACEUTICALS INC-2013-005877

PATIENT
  Age: 51 Year
  Sex: Male
  Weight: 103 kg

DRUGS (10)
  1. BLINDED PRE-TREATMENT [Suspect]
     Indication: HEPATITIS C
     Dosage: UNK UNK, TID
     Route: 048
     Dates: start: 20120629, end: 20120920
  2. BLINDED TMC435 [Suspect]
     Indication: HEPATITIS C
     Dosage: UNK UNK, TID
     Route: 048
     Dates: start: 20120629, end: 20120920
  3. BLINDED VX-950 (TELAPREVIR) [Suspect]
     Indication: HEPATITIS C
     Dosage: UNK UNK, TID
     Route: 048
     Dates: start: 20120629, end: 20120920
  4. PEGINTERFERON ALFA 2A [Suspect]
     Indication: HEPATITIS C
     Dosage: 180 ?G, QW
     Route: 058
     Dates: start: 20120629
  5. RIBAVIRIN [Suspect]
     Indication: HEPATITIS C
     Dosage: 600 MG, BID
     Route: 048
     Dates: start: 20120629, end: 20130504
  6. RIBAVIRIN [Suspect]
     Dosage: 600 MG, BID
     Route: 048
     Dates: start: 20130510
  7. JANUMET [Concomitant]
     Indication: DIABETES MELLITUS
     Dosage: 1 DF, BID (STARTED PRE-TRIAL)
     Route: 048
  8. GLIMEPIRIDE [Concomitant]
     Indication: DIABETES MELLITUS
     Dosage: 4 MG, BID (STARTED PRE-TRIAL)
     Route: 048
  9. VALSARTAN [Concomitant]
     Indication: HYPERTENSION
     Dosage: 160 MG, QD
     Route: 048
     Dates: start: 20120712
  10. VALSARTAN [Concomitant]
     Dosage: 80 MG, QD
     Route: 048
     Dates: start: 20120705, end: 20120711

REACTIONS (1)
  - Acute myocardial infarction [Recovered/Resolved]
